FAERS Safety Report 9602351 (Version 1)
Quarter: 2013Q4

REPORT INFORMATION
  Report Type: Spontaneous
  Country: US (occurrence: US)
  Receive Date: 20131007
  Receipt Date: 20131007
  Transmission Date: 20140711
  Serious: No
  Sender: FDA-Public Use
  Company Number: US-GLAXOSMITHKLINE-A1035577A

PATIENT
  Age: 31 Year
  Sex: Female
  Weight: 56 kg

DRUGS (3)
  1. BENLYSTA [Suspect]
     Dosage: 10MGK UNKNOWN
     Route: 042
     Dates: start: 20130212
  2. ACETAMINOPHEN [Concomitant]
  3. DIPHENHYDRAMINE [Concomitant]

REACTIONS (4)
  - Pain in extremity [Recovered/Resolved]
  - Pain in extremity [Recovered/Resolved]
  - Pain in extremity [Recovered/Resolved]
  - Back pain [Recovered/Resolved]
